FAERS Safety Report 7293402-X (Version None)
Quarter: 2011Q1

REPORT INFORMATION
  Report Type: 
  Country: None (occurrence: None)
  Receive Date: 20110215
  Receipt Date: 20110207
  Transmission Date: 20110831
  Serious: Yes (Other)
  Sender: FDA-Public Use
  Company Number: DE-WATSON-2011-01657

PATIENT
  Age: 12 Year
  Sex: Male

DRUGS (5)
  1. IFOSFAMIDE [Suspect]
     Indication: BONE SARCOMA
     Dosage: UNK
  2. DOXORUBICIN [Suspect]
     Indication: BONE SARCOMA
     Dosage: 75MG/MM
  3. ETOPOSIDE [Suspect]
     Indication: BONE SARCOMA
     Dosage: UNK
  4. CISPLATIN [Suspect]
     Indication: BONE SARCOMA
     Dosage: 120MG/MM
  5. METHOTREXATE [Suspect]
     Indication: BONE SARCOMA
     Dosage: 12G/MM

REACTIONS (4)
  - BONE MARROW FAILURE [None]
  - RENAL FAILURE [None]
  - HEPATOTOXICITY [None]
  - COAGULOPATHY [None]
